FAERS Safety Report 7624179-3 (Version None)
Quarter: 2011Q3

REPORT INFORMATION
  Report Type: 
  Country: None (occurrence: None)
  Receive Date: 20110720
  Receipt Date: 20110720
  Transmission Date: 20111222
  Serious: Yes (Hospitalization)
  Sender: FDA-Public Use
  Company Number: None

PATIENT
  Age: 61 Year
  Sex: Male
  Weight: 94.347 kg

DRUGS (2)
  1. DOXYCYCLINE HYCLATE [Suspect]
     Indication: RASH
     Dosage: 100
     Route: 048
     Dates: start: 20110616, end: 20110708
  2. DOXYCYCLINE HYCLATE [Suspect]
     Indication: ARTHROPOD BITE
     Dosage: 100
     Route: 048
     Dates: start: 20110616, end: 20110708

REACTIONS (8)
  - RASH [None]
  - PYREXIA [None]
  - HEADACHE [None]
  - LIVER DISORDER [None]
  - LUNG DISORDER [None]
  - CARDIAC DISORDER [None]
  - RENAL IMPAIRMENT [None]
  - DECREASED APPETITE [None]
